FAERS Safety Report 6567372-3 (Version None)
Quarter: 2010Q1

REPORT INFORMATION
  Report Type: 
  Country: None (occurrence: None)
  Receive Date: 20100202
  Receipt Date: 20100127
  Transmission Date: 20100710
  Serious: Yes (Death, Hospitalization, Other)
  Sender: FDA-Public Use
  Company Number: PHHY2010GB04867

PATIENT
  Sex: Male

DRUGS (1)
  1. CLOZARIL [Suspect]
     Indication: SCHIZOPHRENIA
     Dosage: UNK
     Dates: start: 20070315

REACTIONS (8)
  - ANTIPSYCHOTIC DRUG LEVEL INCREASED [None]
  - CONSTIPATION [None]
  - GASTROINTESTINAL SOUNDS ABNORMAL [None]
  - GENERAL PHYSICAL HEALTH DETERIORATION [None]
  - INTESTINAL OBSTRUCTION [None]
  - LOWER RESPIRATORY TRACT INFECTION [None]
  - PNEUMONIA [None]
  - PULMONARY OEDEMA [None]
